FAERS Safety Report 13024208 (Version 3)
Quarter: 2017Q2

REPORT INFORMATION
  Report Type: Spontaneous
  Country: JP (occurrence: JP)
  Receive Date: 20161213
  Receipt Date: 20170426
  Transmission Date: 20170830
  Serious: Yes (Hospitalization)
  Sender: FDA-Public Use
  Company Number: JP-DSJP-DSJ-2016-141258

PATIENT
  Age: 86 Year
  Sex: Male
  Weight: 42 kg

DRUGS (24)
  1. BAYASPIRIN [Suspect]
     Active Substance: ASPIRIN
     Indication: TRICUSPID VALVE REPAIR
  2. VASOLAN                            /00014302/ [Concomitant]
     Active Substance: VERAPAMIL HYDROCHLORIDE
     Indication: ATRIAL FIBRILLATION
     Dosage: 40 MG, TID
     Route: 048
     Dates: start: 20161122, end: 20161202
  3. SPIRONOLACTONE. [Concomitant]
     Active Substance: SPIRONOLACTONE
     Indication: TRICUSPID VALVE INCOMPETENCE
  4. BAYASPIRIN [Suspect]
     Active Substance: ASPIRIN
     Indication: MITRAL VALVE REPAIR
  5. FUROSEMIDE. [Concomitant]
     Active Substance: FUROSEMIDE
     Indication: MITRAL VALVE REPAIR
  6. FUROSEMIDE. [Concomitant]
     Active Substance: FUROSEMIDE
     Indication: TRICUSPID VALVE REPAIR
  7. SPIRONOLACTONE. [Concomitant]
     Active Substance: SPIRONOLACTONE
     Indication: MITRAL VALVE REPAIR
  8. AMBROXOL [Concomitant]
     Active Substance: AMBROXOL
     Indication: BRONCHITIS
     Dosage: 45 MG, QD
     Route: 048
     Dates: start: 20161018
  9. FUROSEMIDE. [Concomitant]
     Active Substance: FUROSEMIDE
     Indication: MITRAL VALVE INCOMPETENCE
     Dosage: 20 MG, BID
     Route: 048
     Dates: start: 201611
  10. BISOPROLOL                         /00802602/ [Concomitant]
     Active Substance: BISOPROLOL
     Indication: ATRIAL FIBRILLATION
     Dosage: 0.625 MG, BID
     Route: 048
     Dates: start: 201611
  11. LIXIANA TABLETS 30MG [Suspect]
     Active Substance: EDOXABAN TOSYLATE
     Indication: ATRIAL FIBRILLATION
     Dosage: 30 MG, QD
     Route: 048
     Dates: start: 201611, end: 20161126
  12. BAYASPIRIN [Suspect]
     Active Substance: ASPIRIN
     Indication: MITRAL VALVE INCOMPETENCE
     Dosage: 100 MG, QD
     Route: 048
     Dates: start: 201611, end: 20161126
  13. BAYASPIRIN [Suspect]
     Active Substance: ASPIRIN
     Indication: TRICUSPID VALVE INCOMPETENCE
  14. SAMSCA [Concomitant]
     Active Substance: TOLVAPTAN
     Indication: TRICUSPID VALVE REPAIR
  15. LANSOPRAZOLE. [Concomitant]
     Active Substance: LANSOPRAZOLE
     Indication: GASTROOESOPHAGEAL REFLUX DISEASE
     Dosage: 30 MG, QD
     Route: 048
     Dates: start: 20161015
  16. SAMSCA [Concomitant]
     Active Substance: TOLVAPTAN
     Indication: MITRAL VALVE INCOMPETENCE
     Dosage: 7.5 MG, QD
     Route: 048
     Dates: start: 20161019, end: 20161126
  17. SAMSCA [Concomitant]
     Active Substance: TOLVAPTAN
     Indication: MITRAL VALVE REPAIR
  18. SAMSCA [Concomitant]
     Active Substance: TOLVAPTAN
     Indication: TRICUSPID VALVE INCOMPETENCE
  19. FEBURIC [Concomitant]
     Active Substance: FEBUXOSTAT
     Indication: HYPERURICAEMIA
     Dosage: 20 MG, QD
     Route: 048
     Dates: start: 20161015
  20. SPIRONOLACTONE. [Concomitant]
     Active Substance: SPIRONOLACTONE
     Indication: MITRAL VALVE INCOMPETENCE
     Dosage: 25 MG, BID
     Route: 048
     Dates: start: 20161018, end: 20161126
  21. LIXIANA TABLETS 30MG [Suspect]
     Active Substance: EDOXABAN TOSYLATE
     Dosage: 30 MG, QD
     Route: 048
     Dates: start: 20161128
  22. FUROSEMIDE. [Concomitant]
     Active Substance: FUROSEMIDE
     Indication: TRICUSPID VALVE INCOMPETENCE
  23. SPIRONOLACTONE. [Concomitant]
     Active Substance: SPIRONOLACTONE
     Indication: TRICUSPID VALVE REPAIR
  24. BISOPROLOL                         /00802602/ [Concomitant]
     Active Substance: BISOPROLOL
     Indication: HYPERTENSION

REACTIONS (1)
  - Duodenal ulcer haemorrhage [Recovered/Resolved]

NARRATIVE: CASE EVENT DATE: 20161126
